FAERS Safety Report 13523419 (Version 2)
Quarter: 2017Q3

REPORT INFORMATION
  Report Type: Spontaneous
  Country: US (occurrence: US)
  Receive Date: 20170508
  Receipt Date: 20170810
  Transmission Date: 20171127
  Serious: No
  Sender: FDA-Public Use
  Company Number: US-VIFOR (INTERNATIONAL) INC.-VIT-2017-03534

PATIENT
  Age: 59 Year
  Sex: Female

DRUGS (21)
  1. SODIUM BICARBONATE. [Concomitant]
     Active Substance: SODIUM BICARBONATE
     Dates: start: 20170123
  2. TRAZODONE [Concomitant]
     Active Substance: TRAZODONE HYDROCHLORIDE
     Dates: start: 20170123
  3. ACETYLSALICYLIC ACID [Concomitant]
     Active Substance: ASPIRIN
     Dates: start: 20170123
  4. CALCITRIOL. [Concomitant]
     Active Substance: CALCITRIOL
     Dates: start: 20170123
  5. VELTASSA [Suspect]
     Active Substance: PATIROMER
     Indication: HYPERKALAEMIA
     Route: 048
     Dates: start: 201610
  6. FERROUS SULFATE. [Concomitant]
     Active Substance: FERROUS SULFATE
  7. METHOCARBAMOL. [Concomitant]
     Active Substance: METHOCARBAMOL
     Dates: start: 20170123
  8. PLAQUENIL [Concomitant]
     Active Substance: HYDROXYCHLOROQUINE SULFATE
     Dates: start: 20170711
  9. DAILY-VITE [Concomitant]
     Dates: start: 20170123
  10. PARACETAMOL [Concomitant]
     Active Substance: ACETAMINOPHEN
     Dates: start: 20170123
  11. SIMVASTATIN. [Concomitant]
     Active Substance: SIMVASTATIN
  12. SULFASALAZINE. [Concomitant]
     Active Substance: SULFASALAZINE
     Dates: start: 20170123
  13. CYMBALTA [Concomitant]
     Active Substance: DULOXETINE HYDROCHLORIDE
     Dates: start: 20170123
  14. ORENCIA [Concomitant]
     Active Substance: ABATACEPT
     Dates: start: 20170711
  15. SULFASALAZINE. [Concomitant]
     Active Substance: SULFASALAZINE
     Dates: start: 20170223
  16. PRAVASTATIN. [Concomitant]
     Active Substance: PRAVASTATIN
     Dates: start: 20170123
  17. ERGOCALCIFEROL. [Concomitant]
     Active Substance: ERGOCALCIFEROL
     Dates: start: 20170223
  18. MACROGOL [Concomitant]
     Active Substance: POLYETHYLENE GLYCOLS
  19. HYDROXYCHLOROQUINE [Concomitant]
     Active Substance: HYDROXYCHLOROQUINE
     Dosage: 1 IN MORNING
     Dates: start: 20170223
  20. LASIX [Concomitant]
     Active Substance: FUROSEMIDE
     Dates: start: 20170123
  21. CARVEDILOL. [Concomitant]
     Active Substance: CARVEDILOL
     Dates: start: 20170123

REACTIONS (2)
  - Drug dose omission [Unknown]
  - Abdominal distension [Not Recovered/Not Resolved]

NARRATIVE: CASE EVENT DATE: 201610
